FAERS Safety Report 8494287-6 (Version None)
Quarter: 2012Q2

REPORT INFORMATION
  Report Type: 
  Country: None (occurrence: None)
  Receive Date: 20120628
  Receipt Date: 20120619
  Transmission Date: 20120825
  Serious: Yes (Hospitalization)
  Sender: FDA-Public Use
  Company Number: 2012SP033722

PATIENT
  Age: 57 Year
  Sex: Female

DRUGS (1)
  1. TEMOZOLOMIDE [Suspect]
     Indication: GLIOBLASTOMA MULTIFORME
     Dosage: 75 MG/M2; PO
     Route: 048
     Dates: start: 20111123, end: 20120103

REACTIONS (6)
  - PANCREATITIS [None]
  - HEPATIC FAILURE [None]
  - ORTHOSTATIC HYPOTENSION [None]
  - PYREXIA [None]
  - HEPATITIS CHOLESTATIC [None]
  - SYNCOPE [None]
